FAERS Safety Report 7334378-6 (Version None)
Quarter: 2011Q1

REPORT INFORMATION
  Report Type: 
  Country: None (occurrence: None)
  Receive Date: 20110307
  Receipt Date: 20110223
  Transmission Date: 20110831
  Serious: Yes (Other)
  Sender: FDA-Public Use
  Company Number: US-CELGENEUS-163-21880-11022928

PATIENT
  Age: 51 Year
  Sex: Female

DRUGS (2)
  1. REVLIMID [Suspect]
     Indication: LYMPHOMA
     Route: 048
  2. RITUXIMAB [Suspect]
     Indication: LYMPHOMA
     Route: 065

REACTIONS (4)
  - TREATMENT RELATED SECONDARY MALIGNANCY [None]
  - HOT FLUSH [None]
  - BREAST CANCER IN SITU [None]
  - BREAST CYST [None]
